FAERS Safety Report 7166868-3 (Version None)
Quarter: 2010Q4

REPORT INFORMATION
  Report Type: 
  Country: None (occurrence: None)
  Receive Date: 20101202
  Receipt Date: 20101117
  Transmission Date: 20110411
  Serious: Yes (Other)
  Sender: FDA-Public Use
  Company Number: 020518

PATIENT
  Sex: Female

DRUGS (1)
  1. CIMZIA [Suspect]
     Indication: CROHN'S DISEASE
     Dosage: (SUBCUTANEOUS)
     Route: 058
     Dates: start: 20090122

REACTIONS (4)
  - DRUG INEFFECTIVE [None]
  - NASOPHARYNGITIS [None]
  - POST PROCEDURAL COMPLICATION [None]
  - UMBILICAL HERNIA REPAIR [None]
